FAERS Safety Report 5574411-5 (Version None)
Quarter: 2007Q4

REPORT INFORMATION
  Report Type: 
  Country: None (occurrence: None)
  Receive Date: 20071226
  Receipt Date: 20071226
  Transmission Date: 20080405
  Serious: Yes (Life-Threatening, Hospitalization)
  Sender: FDA-Public Use
  Company Number: None

PATIENT
  Sex: Female
  Weight: 49.8957 kg

DRUGS (7)
  1. HEPARIN [Suspect]
     Indication: CENTRAL VENOUS CATHETERISATION
     Dosage: 5 ML Q. DAY IV BOLUS
     Route: 040
     Dates: start: 20071209, end: 20071210
  2. DIGOXIN [Concomitant]
  3. ACYCLOVIR [Concomitant]
  4. FLUCONAZOLE [Concomitant]
  5. WELLBUTRIN [Concomitant]
  6. ENALOPRIL [Concomitant]
  7. PREMARIN [Concomitant]

REACTIONS (7)
  - CHILLS [None]
  - NAUSEA [None]
  - NEUTROPENIA [None]
  - PYREXIA [None]
  - SERRATIA INFECTION [None]
  - THERAPEUTIC PRODUCT CONTAMINATION [None]
  - VOMITING [None]
